FAERS Safety Report 9085642 (Version 1)
Quarter: 2013Q1

REPORT INFORMATION
  Report Type: Report from Study
  Country: US (occurrence: US)
  Receive Date: 20130131
  Receipt Date: 20130131
  Transmission Date: 20140127
  Serious: No
  Sender: FDA-Public Use
  Company Number: US-ABBOTT-12P-163-1002756-00

PATIENT
  Age: 50 Year
  Sex: Male

DRUGS (9)
  1. HUMIRA [Suspect]
     Indication: RHEUMATOID ARTHRITIS
     Dosage: INITIAL DOSE
     Route: 058
     Dates: start: 20121026
  2. SULFASALAZINE [Concomitant]
     Indication: RHEUMATOID ARTHRITIS
     Dosage: 500 MG, 2 TABS TWICE A DAY
  3. FOLIC ACID [Concomitant]
     Indication: RHEUMATOID ARTHRITIS
     Dosage: 1 MG DAILY
  4. METFORMIN [Concomitant]
     Indication: DIABETES MELLITUS
     Dosage: 500 MG, TWO IN AM DAILY
  5. METHOTREXATE [Concomitant]
     Indication: RHEUMATOID ARTHRITIS
     Dosage: 2.5 MG, 6 WEEKLY
  6. SIMVASTATIN [Concomitant]
     Indication: BLOOD CHOLESTEROL INCREASED
     Dosage: 40 MG DAILY
  7. LISINOPRIL [Concomitant]
     Indication: DIABETES MELLITUS
     Dosage: 5 MG DAILY
  8. LISINOPRIL [Concomitant]
     Indication: RENAL IMPAIRMENT
  9. ASA [Concomitant]
     Indication: PROPHYLAXIS
     Dosage: 81 MG DAILY

REACTIONS (1)
  - Swelling [Not Recovered/Not Resolved]
